FAERS Safety Report 6304030-4 (Version None)
Quarter: 2009Q3

REPORT INFORMATION
  Report Type: 
  Country: None (occurrence: None)
  Receive Date: 20090810
  Receipt Date: 20090729
  Transmission Date: 20100115
  Serious: Yes (Hospitalization)
  Sender: FDA-Public Use
  Company Number: US-PFIZER INC-2009188667

PATIENT
  Sex: Male
  Weight: 72 kg

DRUGS (11)
  1. DOXORUBICIN HCL [Suspect]
     Indication: DIFFUSE LARGE B-CELL LYMPHOMA
     Dosage: 50 MG/M2, OTHER
     Route: 042
     Dates: start: 20090305
  2. CYCLOPHOSPHAMIDE [Suspect]
     Indication: DIFFUSE LARGE B-CELL LYMPHOMA
     Dosage: 750 MG/M2, OTHER
     Route: 042
     Dates: start: 20090305
  3. VINCRISTINE [Suspect]
     Indication: DIFFUSE LARGE B-CELL LYMPHOMA
     Dosage: 1.4 MG/M2, OTHER
     Route: 042
     Dates: start: 20090305
  4. PREDNISONE [Suspect]
     Indication: DIFFUSE LARGE B-CELL LYMPHOMA
     Dosage: 100 MG, OTHER
     Route: 048
     Dates: start: 20090305
  5. ENZASTAURIN [Suspect]
     Indication: DIFFUSE LARGE B-CELL LYMPHOMA
     Dosage: 1125 MG, DAILY-1X/DAY
     Route: 048
     Dates: start: 20090306, end: 20090306
  6. ENZASTAURIN [Suspect]
     Dosage: 500 MG, DAILY- 1X/DAY
     Route: 048
     Dates: start: 20090307, end: 20090313
  7. ENZASTAURIN [Suspect]
     Dosage: 250 MG, DAILY1X/DAY
     Route: 048
     Dates: start: 20090322, end: 20090404
  8. ENZASTAURIN [Suspect]
     Dosage: 500 MG, 1X/DAY
     Route: 048
     Dates: start: 20090405
  9. RITUXIMAB [Suspect]
     Indication: DIFFUSE LARGE B-CELL LYMPHOMA
     Dosage: 375 MG/M2, OTHER
     Route: 042
     Dates: start: 20090305
  10. METOPROLOL [Concomitant]
     Dosage: UNK
     Dates: start: 20090306, end: 20090309
  11. METFORMIN [Concomitant]
     Dosage: UNK

REACTIONS (3)
  - FEBRILE NEUTROPENIA [None]
  - HYPOTENSION [None]
  - SEPSIS [None]
